FAERS Safety Report 13037004 (Version 1)
Quarter: 2016Q4

REPORT INFORMATION
  Report Type: Spontaneous
  Country: GB (occurrence: GB)
  Receive Date: 20161216
  Receipt Date: 20161216
  Transmission Date: 20170207
  Serious: Yes (Other)
  Sender: FDA-Public Use
  Company Number: GB-PFIZER INC-2016577062

PATIENT
  Age: 35 Year
  Sex: Female
  Weight: 81 kg

DRUGS (3)
  1. AZATHIOPRINE. [Concomitant]
     Active Substance: AZATHIOPRINE
     Dosage: 2 G, 1X/DAY
  2. CLINDAMYCIN PHOSPHATE. [Suspect]
     Active Substance: CLINDAMYCIN PHOSPHATE
     Indication: BACTERIAL VAGINOSIS
     Dosage: 1 DF, UNK
     Route: 067
     Dates: start: 20160719, end: 20160720
  3. LANSOPRAZOLE. [Concomitant]
     Active Substance: LANSOPRAZOLE
     Dosage: 15 MG, 1X/DAY

REACTIONS (4)
  - Colitis ulcerative [Recovering/Resolving]
  - Rectal haemorrhage [Recovering/Resolving]
  - Diarrhoea [Recovering/Resolving]
  - Drug prescribing error [Recovering/Resolving]

NARRATIVE: CASE EVENT DATE: 20160719
